FAERS Safety Report 10238329 (Version 1)
Quarter: 2014Q2

REPORT INFORMATION
  Report Type: Spontaneous
  Country: US (occurrence: US)
  Receive Date: 20140616
  Receipt Date: 20140616
  Transmission Date: 20141212
  Serious: No
  Sender: FDA-Public Use
  Company Number: US-PFIZER INC-2014164511

PATIENT
  Age: 43 Year
  Sex: Female
  Weight: 88.89 kg

DRUGS (4)
  1. CHANTIX [Suspect]
     Indication: SMOKING CESSATION THERAPY
     Dosage: UNK
     Dates: start: 20120703, end: 2012
  2. CHANTIX [Suspect]
     Dosage: UNK
     Dates: start: 20130105, end: 2013
  3. CHANTIX [Suspect]
     Dosage: UNK
     Dates: start: 20140327
  4. LISINOPRIL [Concomitant]
     Indication: HYPERTENSION
     Dosage: 20 MG, DAILY

REACTIONS (2)
  - Therapeutic response changed [Unknown]
  - Energy increased [Unknown]
